FAERS Safety Report 6212857-2 (Version None)
Quarter: 2009Q2

REPORT INFORMATION
  Report Type: 
  Country: None (occurrence: None)
  Receive Date: 20090603
  Receipt Date: 20090525
  Transmission Date: 20091009
  Serious: Yes (Hospitalization)
  Sender: FDA-Public Use
  Company Number: FR-ASTRAZENECA-2009CG01002

PATIENT
  Age: 96 Year
  Sex: Male

DRUGS (3)
  1. NEXIUM [Suspect]
     Route: 048
     Dates: start: 20090112
  2. ZYVOXID [Suspect]
     Indication: PROSTATITIS
     Route: 048
     Dates: start: 20090108, end: 20090213
  3. OFLOCET [Suspect]
     Indication: PROSTATITIS
     Route: 048
     Dates: start: 20090113, end: 20090213

REACTIONS (1)
  - APLASTIC ANAEMIA [None]
